FAERS Safety Report 7444820-8 (Version None)
Quarter: 2011Q2

REPORT INFORMATION
  Report Type: 
  Country: None (occurrence: None)
  Receive Date: 20110429
  Receipt Date: 20110426
  Transmission Date: 20111010
  Serious: Yes (Death, Life-Threatening, Hospitalization, Disabling, Other)
  Sender: FDA-Public Use
  Company Number: JP-PFIZER INC-2010093682

PATIENT
  Age: 76 Year
  Sex: Male
  Weight: 61 kg

DRUGS (13)
  1. TAMSULOSIN HCL [Concomitant]
     Indication: BENIGN PROSTATIC HYPERPLASIA
     Dosage: 1 DF, 1X/DAY
     Route: 048
  2. SUNITINIB MALATE [Suspect]
     Dosage: 12.5 MG, 1X/DAY
     Dates: start: 20100114, end: 20100117
  3. VOLTAREN [Concomitant]
     Indication: RENAL CELL CARCINOMA
     Dosage: 1 DF, 2X/DAY
     Route: 048
     Dates: start: 20091106
  4. DIOVAN [Concomitant]
     Indication: HYPERTENSION
     Dosage: 1 DF, 1X/DAY
     Route: 048
  5. SUNITINIB MALATE [Suspect]
     Indication: RENAL CELL CARCINOMA
     Dosage: 37.5 MG, 1X/DAY
     Route: 048
     Dates: start: 20090904
  6. CYTOTEC [Concomitant]
     Indication: RENAL CELL CARCINOMA
     Dosage: 1 DF, 2X/DAY
     Route: 048
     Dates: start: 20091106
  7. GABAPENTIN [Concomitant]
     Dosage: 1 DF, 3X/DAY
     Route: 048
     Dates: start: 20091106
  8. MAGMITT [Concomitant]
     Indication: CONSTIPATION
     Dosage: 660 MG, 3X/DAY
     Route: 048
  9. NORVASC [Concomitant]
     Indication: HYPERTENSION
     Dosage: 1 DF, 1X/DAY
     Route: 048
  10. METHYCOBAL [Concomitant]
     Indication: NEUROPATHY PERIPHERAL
     Dosage: 1 DF, 3X/DAY
     Route: 048
  11. PURSENNID [Concomitant]
     Indication: CONSTIPATION
     Dosage: 2 DF, 1X/DAY
     Route: 048
  12. OXYCONTIN [Concomitant]
     Indication: RENAL CELL CARCINOMA
     Dosage: 3 DF, 2X/DAY
     Route: 048
  13. KERATINAMIN [Concomitant]
     Indication: PROPHYLAXIS
     Dosage: UNK
     Route: 062
     Dates: start: 20090904

REACTIONS (4)
  - POSTOPERATIVE WOUND INFECTION [None]
  - DISEASE PROGRESSION [None]
  - HYPOTHYROIDISM [None]
  - RENAL CELL CARCINOMA [None]
